FAERS Safety Report 10149534 (Version 1)
Quarter: 2014Q2

REPORT INFORMATION
  Report Type: Spontaneous
  Country: GB (occurrence: None)
  Receive Date: 20140430
  Receipt Date: 20140430
  Transmission Date: 20141212
  Serious: Yes (Hospitalization, Other)
  Sender: FDA-Public Use
  Company Number: AUR-APL-2014-05004

PATIENT
  Age: 83 Year
  Sex: 0

DRUGS (13)
  1. LISINOPRIL (LISINOPRIL) [Suspect]
     Indication: HYPERTENSION
     Dosage: 10MG (10MG, 1 IN 1 D), ORAL
     Route: 048
     Dates: start: 20140320, end: 20140408
  2. ALFACALCIDOL [Concomitant]
  3. ALLOPURINOL (ALLOPURINOL) [Concomitant]
  4. AMLODIPINE (AMLODIPINE) [Concomitant]
  5. CETIRIZINE (CETIRIZINE) [Concomitant]
  6. CODEINE (CODEINE) [Concomitant]
  7. DOXAZOSIN (DOXAZOSIN) [Concomitant]
  8. FERROUS SULPHATE (FERROUS SULFATE) [Concomitant]
  9. NOVORAPID (INSULIN ASPART) [Concomitant]
  10. OXYBUTYNIN (OXYBUTYNIN) [Concomitant]
  11. PARACETAMOL (PARACETAMOL) [Concomitant]
  12. SALBUTAMOL (SALBUTAMOL) [Concomitant]
  13. SODIUM BICARBONATE (SODIUM BICARBONATE) [Concomitant]

REACTIONS (3)
  - Hyperkalaemia [None]
  - Electrocardiogram T wave peaked [None]
  - Acidosis [None]
